FAERS Safety Report 21786116 (Version 9)
Quarter: 2023Q4

REPORT INFORMATION
  Report Type: Spontaneous
  Country: PL (occurrence: PL)
  Receive Date: 20221228
  Receipt Date: 20231231
  Transmission Date: 20240110
  Serious: Yes (Hospitalization, Other)
  Sender: FDA-Public Use
  Company Number: PL-VIPHPROD-KWE-104-2022

PATIENT
  Age: 41 Year
  Sex: Male

DRUGS (25)
  1. ATORVASTATIN [Interacting]
     Active Substance: ATORVASTATIN
     Indication: Dyslipidaemia
     Dosage: 40 MILLIGRAM, ONCE A DAY
     Route: 048
  2. IBUPROFEN [Interacting]
     Active Substance: IBUPROFEN
     Indication: Visceral pain
     Dosage: 1800 MILLIGRAM, ONCE A DAY
     Route: 048
  3. IBUPROFEN [Interacting]
     Active Substance: IBUPROFEN
     Indication: Pancreatitis chronic
  4. IBUPROFEN [Interacting]
     Active Substance: IBUPROFEN
     Indication: Pancreatitis
  5. QUETIAPINE [Interacting]
     Active Substance: QUETIAPINE
     Indication: Anxiety
     Dosage: 100 MILLIGRAM, ONCE A DAY
     Route: 048
  6. QUETIAPINE [Interacting]
     Active Substance: QUETIAPINE
     Indication: Sleep disorder
  7. QUETIAPINE [Interacting]
     Active Substance: QUETIAPINE
     Indication: Insomnia
  8. TRAMADOL [Interacting]
     Active Substance: TRAMADOL\TRAMADOL HYDROCHLORIDE
     Indication: Pancreatitis
     Dosage: 200 MILLIGRAM, ONCE A DAY
     Route: 048
  9. TRAMADOL [Interacting]
     Active Substance: TRAMADOL\TRAMADOL HYDROCHLORIDE
     Indication: Visceral pain
     Dosage: 300 MILLIGRAM, ONCE A DAY (DAILY)
     Route: 065
  10. TRAMADOL [Interacting]
     Active Substance: TRAMADOL\TRAMADOL HYDROCHLORIDE
     Indication: Pancreatitis chronic
  11. OMEPRAZOLE [Interacting]
     Active Substance: OMEPRAZOLE
     Indication: Visceral pain
     Dosage: 40 MILLIGRAM, ONCE A DAY
     Route: 048
  12. OMEPRAZOLE [Interacting]
     Active Substance: OMEPRAZOLE
     Indication: Pancreatitis chronic
  13. OMEPRAZOLE [Interacting]
     Active Substance: OMEPRAZOLE
     Indication: Abdominal pain upper
     Dosage: 40 MILLIGRAM, ONCE A DAY
     Route: 048
  14. BUPRENORPHINE [Concomitant]
     Active Substance: BUPRENORPHINE
     Indication: Visceral pain
     Dosage: 17.5 MILLIGRAM/HOUR
     Route: 062
  15. BUPRENORPHINE [Concomitant]
     Active Substance: BUPRENORPHINE
     Dosage: 17.5 MICROGRAM (17.5 MICROGRAM, QH (NEW PATCH APPLIED EVERY 72 HOURS) )
     Route: 062
  16. IBUPROFEN [Concomitant]
     Active Substance: IBUPROFEN
     Indication: Visceral pain
     Dosage: 1800 MILLIGRAM, ONCE A DAY
     Route: 065
  17. IBUPROFEN [Concomitant]
     Active Substance: IBUPROFEN
     Indication: Pancreatitis chronic
  18. METAMIZOLE [Concomitant]
     Active Substance: METAMIZOLE
     Indication: Pain
     Dosage: 5000 MILLIGRAM, ONCE A DAY
     Route: 065
  19. METAMIZOLE [Concomitant]
     Active Substance: METAMIZOLE
     Indication: Visceral pain
     Dosage: 1000 MILLIGRAM (1000 MILLIGRAM (UP TO A MAXIMUM DOSE OF 5000 MG/D IF HIS PAIN EXACERBATED))
     Route: 065
  20. PITAVASTATIN [Concomitant]
     Active Substance: PITAVASTATIN
     Indication: Product used for unknown indication
     Dosage: UNK
     Route: 065
  21. PREGABALIN [Concomitant]
     Active Substance: PREGABALIN
     Indication: Anxiety
     Dosage: 75 MILLIGRAM (75 MILLIGRAM, QD USED AT NIGHT )
     Route: 065
  22. PREGABALIN [Concomitant]
     Active Substance: PREGABALIN
     Indication: Sleep disorder
  23. TRAMADOL [Concomitant]
     Active Substance: TRAMADOL\TRAMADOL HYDROCHLORIDE
     Indication: Visceral pain
     Dosage: 200 MILLIGRAM, ONCE A DAY
     Route: 065
  24. TRAMADOL [Concomitant]
     Active Substance: TRAMADOL\TRAMADOL HYDROCHLORIDE
     Dosage: 300 MILLIGRAM, ONCE A DAY
     Route: 065
  25. IBUPROFEN [Suspect]
     Active Substance: IBUPROFEN

REACTIONS (18)
  - Seizure [Recovered/Resolved]
  - Pain [Recovered/Resolved]
  - Drug interaction [Recovered/Resolved]
  - Inadequate analgesia [Recovered/Resolved]
  - Sleep disorder [Recovered/Resolved]
  - Anxiety [Recovered/Resolved]
  - Visceral pain [Recovering/Resolving]
  - Insomnia [Recovering/Resolving]
  - Condition aggravated [Recovering/Resolving]
  - Drug level increased [Unknown]
  - Product use in unapproved indication [Unknown]
  - Off label use [Unknown]
  - Fear [Recovering/Resolving]
  - Poor quality sleep [Recovering/Resolving]
  - Abdominal pain upper [Recovered/Resolved]
  - Dysbiosis [Unknown]
  - Overdose [Recovered/Resolved]
  - Drug ineffective [Unknown]
